FAERS Safety Report 5508291-0 (Version None)
Quarter: 2007Q4

REPORT INFORMATION
  Report Type: 
  Country: None (occurrence: None)
  Receive Date: 20071106
  Receipt Date: 20071030
  Transmission Date: 20080405
  Serious: Yes (Hospitalization)
  Sender: FDA-Public Use
  Company Number: US-BOEHRINGER INGELHEIM PHARMACEUTICALS, INC.-2007-BP-23665BP

PATIENT
  Sex: Female

DRUGS (8)
  1. MOBIC [Suspect]
     Indication: RHEUMATOID ARTHRITIS
     Route: 048
     Dates: end: 20071003
  2. ABATACEPT [Suspect]
     Indication: RHEUMATOID ARTHRITIS
     Route: 042
     Dates: start: 20070822
  3. VOLTAREN [Suspect]
     Indication: RHEUMATOID ARTHRITIS
     Route: 054
     Dates: end: 20071003
  4. PREDNISOLONE [Concomitant]
     Dates: end: 20071003
  5. KETOPROFEN [Concomitant]
     Dates: end: 20071003
  6. FAMOTIDINE [Concomitant]
     Dates: end: 20071003
  7. LIPITOR [Concomitant]
     Dates: end: 20071003
  8. GLYSENNID [Concomitant]
     Dates: end: 20071003

REACTIONS (6)
  - DIARRHOEA [None]
  - GASTRIC ULCER [None]
  - GASTROINTESTINAL INFECTION [None]
  - HAEMATEMESIS [None]
  - HAEMOGLOBIN DECREASED [None]
  - PYREXIA [None]
